FAERS Safety Report 14815983 (Version 2)
Quarter: 2018Q2

REPORT INFORMATION
  Report Type: Spontaneous
  Country: US (occurrence: US)
  Receive Date: 20180426
  Receipt Date: 20180509
  Transmission Date: 20180711
  Serious: No
  Sender: FDA-Public Use
  Company Number: US-CELGENEUS-USA-20180408510

PATIENT
  Age: 64 Year
  Sex: Female

DRUGS (11)
  1. ETOPOSIDE. [Concomitant]
     Active Substance: ETOPOSIDE
     Indication: PLASMA CELL MYELOMA
     Route: 041
     Dates: start: 20180327, end: 20180330
  2. THALOMID [Suspect]
     Active Substance: THALIDOMIDE
     Indication: PLASMA CELL MYELOMA
     Dosage: 100 MILLIGRAM
     Route: 048
     Dates: start: 20180406, end: 20180413
  3. DOXORUBICIN [Concomitant]
     Active Substance: DOXORUBICIN
     Indication: PLASMA CELL MYELOMA
     Route: 041
     Dates: start: 20180327, end: 20180330
  4. CISPLATIN. [Concomitant]
     Active Substance: CISPLATIN
     Indication: PLASMA CELL MYELOMA
     Route: 041
     Dates: start: 20180327, end: 20180330
  5. DEXAMETHASONE. [Concomitant]
     Active Substance: DEXAMETHASONE
     Route: 065
  6. VELCADE [Concomitant]
     Active Substance: BORTEZOMIB
     Indication: PLASMA CELL MYELOMA
     Route: 058
     Dates: start: 20180327, end: 20180406
  7. CISPLATIN. [Concomitant]
     Active Substance: CISPLATIN
     Route: 065
  8. DEXAMETHASONE. [Concomitant]
     Active Substance: DEXAMETHASONE
     Indication: PLASMA CELL MYELOMA
     Route: 065
     Dates: start: 20180327, end: 20180330
  9. VELCADE [Concomitant]
     Active Substance: BORTEZOMIB
     Route: 065
  10. DOXORUBICIN [Concomitant]
     Active Substance: DOXORUBICIN
     Route: 065
  11. ETOPOSIDE. [Concomitant]
     Active Substance: ETOPOSIDE
     Route: 065

REACTIONS (1)
  - Rash [Recovered/Resolved]

NARRATIVE: CASE EVENT DATE: 20180413
